FAERS Safety Report 17795148 (Version 1)
Quarter: 2020Q2

REPORT INFORMATION
  Report Type: Spontaneous
  Country: JP (occurrence: JP)
  Receive Date: 20200515
  Receipt Date: 20200515
  Transmission Date: 20200714
  Serious: Yes (Other)
  Sender: FDA-Public Use
  Company Number: JP-BAUSCH-BL-2020-013868

PATIENT
  Age: 14 Year
  Sex: Male

DRUGS (46)
  1. VINCRISTINE [Concomitant]
     Active Substance: VINCRISTINE
     Dosage: DAY-207
  2. PIRARUBICIN HYDROCHLORIDE [Concomitant]
     Active Substance: PIRARUBICIN HYDROCHLORIDE
     Indication: ACUTE LYMPHOCYTIC LEUKAEMIA
     Dosage: ON DAY 207
  3. CYTARABINE. [Concomitant]
     Active Substance: CYTARABINE
     Indication: ACUTE LYMPHOCYTIC LEUKAEMIA
     Dosage: FROM DAY 221-8
  4. HYDROCORTISONE. [Suspect]
     Active Substance: HYDROCORTISONE
     Indication: ACUTE LYMPHOCYTIC LEUKAEMIA
     Dosage: LOW-DOSE, CONSOLIDATION THERAPY
     Route: 065
  5. L-ASPARAGINASE [Suspect]
     Active Substance: ASPARAGINASE
     Dosage: DAY-221, FIRST RE-INDUCTION PHASE CONTINUED TILL DAY-235
     Route: 065
  6. VINCRISTINE [Concomitant]
     Active Substance: VINCRISTINE
     Dosage: ON DAY-333
  7. DEXAMETHASONE. [Suspect]
     Active Substance: DEXAMETHASONE
     Dosage: DAY-333
     Route: 065
  8. DEXAMETHASONE. [Suspect]
     Active Substance: DEXAMETHASONE
     Dosage: DAY-340 THE DOSE WAS REDUCED
     Route: 065
  9. PREDNISOLONE. [Suspect]
     Active Substance: PREDNISOLONE
     Indication: ACUTE LYMPHOCYTIC LEUKAEMIA
     Dosage: DAY-1 (PRE-PHASE)
     Route: 065
  10. L-ASPARAGINASE [Suspect]
     Active Substance: ASPARAGINASE
     Indication: ACUTE LYMPHOCYTIC LEUKAEMIA
     Dosage: DAY-8 (INDUCTION THERAPY) AND CONTINUED DURING THE CONSOLIDATION THERAPY (HIGH DOSE)
     Route: 065
  11. CYCLOPHOSPHAMIDE. [Concomitant]
     Active Substance: CYCLOPHOSPHAMIDE
     Dosage: BETWEEN DAY 354-61
  12. HYDROCORTISONE. [Suspect]
     Active Substance: HYDROCORTISONE
     Dosage: ON DAY 340- BEFORE 347
     Route: 065
  13. VINCRISTINE [Concomitant]
     Active Substance: VINCRISTINE
     Indication: ACUTE LYMPHOCYTIC LEUKAEMIA
     Dosage: DAY-8
  14. VINCRISTINE [Concomitant]
     Active Substance: VINCRISTINE
     Dosage: DAY-214
  15. VINCRISTINE [Concomitant]
     Active Substance: VINCRISTINE
     Dosage: DAY-340
  16. PIRARUBICIN HYDROCHLORIDE [Concomitant]
     Active Substance: PIRARUBICIN HYDROCHLORIDE
     Dosage: ON DAY 340
  17. HYDROCORTISONE. [Suspect]
     Active Substance: HYDROCORTISONE
     Dosage: DAY-214, FIRST RE-INDUCTION PHASE
     Route: 065
  18. HYDROCORTISONE. [Suspect]
     Active Substance: HYDROCORTISONE
     Dosage: ON DAY 354- BEFORE 368
     Route: 065
  19. DEXAMETHASONE. [Suspect]
     Active Substance: DEXAMETHASONE
     Dosage: ON DAY 347-354
     Route: 065
  20. MERCAPTOPURINE. [Concomitant]
     Active Substance: MERCAPTOPURINE
     Indication: ACUTE LYMPHOCYTIC LEUKAEMIA
     Dosage: BETWEEN DAY 221-235;
  21. MERCAPTOPURINE. [Concomitant]
     Active Substance: MERCAPTOPURINE
     Dosage: BETWEEN DAY 354-AFTER DAY 368.
  22. PIRARUBICIN HYDROCHLORIDE [Concomitant]
     Active Substance: PIRARUBICIN HYDROCHLORIDE
     Dosage: ON DAY 333
  23. PREDNISOLONE. [Suspect]
     Active Substance: PREDNISOLONE
     Dosage: DOSE REDUCED BETWEEN THE DAY 22-29
     Route: 065
  24. VINCRISTINE [Concomitant]
     Active Substance: VINCRISTINE
     Dosage: DAY-15
  25. VINCRISTINE [Concomitant]
     Active Substance: VINCRISTINE
     Dosage: DAY-29
  26. DAUNORUBICIN [Concomitant]
     Active Substance: DAUNORUBICIN
     Indication: ACUTE LYMPHOCYTIC LEUKAEMIA
     Dosage: DAY-8
  27. DAUNORUBICIN [Concomitant]
     Active Substance: DAUNORUBICIN
     Dosage: DAY-15
  28. DAUNORUBICIN [Concomitant]
     Active Substance: DAUNORUBICIN
     Dosage: DAY-29
  29. CYCLOPHOSPHAMIDE. [Concomitant]
     Active Substance: CYCLOPHOSPHAMIDE
     Indication: ACUTE LYMPHOCYTIC LEUKAEMIA
     Dosage: BETWEEN DAY 221-8
  30. HYDROCORTISONE. [Suspect]
     Active Substance: HYDROCORTISONE
     Dosage: BETWEEN DAY-228 TO 235
     Route: 065
  31. L-ASPARAGINASE [Suspect]
     Active Substance: ASPARAGINASE
     Dosage: ON DAY-333- PRIOR TO DAY 347
     Route: 065
  32. VINCRISTINE [Concomitant]
     Active Substance: VINCRISTINE
     Dosage: DAY-22
  33. DAUNORUBICIN [Concomitant]
     Active Substance: DAUNORUBICIN
     Dosage: DAY-22
  34. CYTARABINE. [Concomitant]
     Active Substance: CYTARABINE
     Dosage: RE-STARTED AFTER DAY 228 DISCONTINUED AFTER DAY 235
  35. DEXAMETHASONE. [Suspect]
     Active Substance: DEXAMETHASONE
     Indication: ACUTE LYMPHOCYTIC LEUKAEMIA
     Dosage: DAY-207-14 ,FIRST RE-INDUCTION PHASE
     Route: 065
  36. DEXAMETHASONE. [Suspect]
     Active Substance: DEXAMETHASONE
     Dosage: DAY-207-14 ,FIRST RE-INDUCTION PHASE
     Route: 065
  37. DEXAMETHASONE. [Suspect]
     Active Substance: DEXAMETHASONE
     Dosage: DAY-221, FIRST RE-INDUCTION PHASE TILL DAY-228
     Route: 065
  38. DEXAMETHASONE. [Suspect]
     Active Substance: DEXAMETHASONE
     Dosage: ON DAY 354- PRIOR TO 361
     Route: 065
  39. PREDNISOLONE. [Suspect]
     Active Substance: PREDNISOLONE
     Dosage: STARTED ON BETWEEN DAY 1-8 AND TILL DAY-18
     Route: 065
  40. PREDNISOLONE. [Suspect]
     Active Substance: PREDNISOLONE
     Dosage: STARTED ON DAY 18 OF CONSOLIDATION THERAPY, SUBSEQUENTLY STOPPED LATER DAY-29
     Route: 065
  41. L-ASPARAGINASE [Suspect]
     Active Substance: ASPARAGINASE
     Dosage: DAY-207, FIRST RE-INDUCTION PHASE, CONTINUED TILL DAY-214.
     Route: 065
  42. L-ASPARAGINASE [Suspect]
     Active Substance: ASPARAGINASE
     Dosage: AFTER DAY 354-PRIOR TO 368
     Route: 065
  43. METHOTREXATE. [Concomitant]
     Active Substance: METHOTREXATE
     Indication: ACUTE LYMPHOCYTIC LEUKAEMIA
     Dosage: DAY 1 (PRE-PHASE)
     Route: 037
  44. PIRARUBICIN HYDROCHLORIDE [Concomitant]
     Active Substance: PIRARUBICIN HYDROCHLORIDE
     Dosage: ON DAY 214
  45. CYTARABINE. [Concomitant]
     Active Substance: CYTARABINE
     Dosage: BETWEEN DAY 364 TO 361
  46. CYTARABINE. [Concomitant]
     Active Substance: CYTARABINE
     Dosage: CONTINUED FURTHER

REACTIONS (1)
  - Type 1 diabetes mellitus [Not Recovered/Not Resolved]
